FAERS Safety Report 6750537-5 (Version None)
Quarter: 2010Q2

REPORT INFORMATION
  Report Type: 
  Country: None (occurrence: None)
  Receive Date: 20100528
  Receipt Date: 20100528
  Transmission Date: 20101027
  Serious: Yes (Life-Threatening, Hospitalization)
  Sender: FDA-Public Use
  Company Number: None

PATIENT
  Age: 36 Year
  Sex: Female

DRUGS (1)
  1. YAZ [Suspect]
     Indication: ORAL CONTRACEPTION
     Dosage: 1 TABLET QD PO
     Route: 048
     Dates: start: 20100101, end: 20100310

REACTIONS (4)
  - ASTHENIA [None]
  - CEREBRAL INFARCTION [None]
  - MUSCLE SPASTICITY [None]
  - VOMITING [None]
